FAERS Safety Report 4736464-3 (Version None)
Quarter: 2005Q3

REPORT INFORMATION
  Report Type: 
  Country: None (occurrence: None)
  Receive Date: 20050805
  Receipt Date: 20050805
  Transmission Date: 20060218
  Serious: No
  Sender: FDA-Public Use
  Company Number: None

PATIENT
  Sex: Male
  Weight: 91.6266 kg

DRUGS (3)
  1. OXYCODONE AND ACETAMINOPHEN [Suspect]
     Indication: NEUROPATHY
     Dosage: 5/325 Q 6 H
     Dates: start: 19890901
  2. ENDOCET [Suspect]
  3. ROXICET [Suspect]

REACTIONS (3)
  - NAUSEA [None]
  - PHARMACEUTICAL PRODUCT COMPLAINT [None]
  - VOMITING [None]
